FAERS Safety Report 14162792 (Version 1)
Quarter: 2017Q4

REPORT INFORMATION
  Report Type: Spontaneous
  Country: US (occurrence: US)
  Receive Date: 20171106
  Receipt Date: 20171106
  Transmission Date: 20180321
  Serious: Yes (Hospitalization, Other)
  Sender: FDA-Public Use
  Company Number: US-WARNER CHILCOTT-2012-000702

PATIENT
  Age: 82 Year
  Sex: Female

DRUGS (27)
  1. ACTONEL [Suspect]
     Active Substance: RISEDRONATE SODIUM
     Indication: OSTEOPOROSIS
  2. AMOXICILLIN. [Concomitant]
     Active Substance: AMOXICILLIN
  3. ACETAMINOPHEN AND CODEINE [Concomitant]
     Active Substance: ACETAMINOPHEN\CODEINE PHOSPHATE
  4. MECLIZINE [Concomitant]
     Active Substance: MECLIZINE HYDROCHLORIDE
  5. TEMAZEPAM. [Concomitant]
     Active Substance: TEMAZEPAM
     Dosage: UNK
  6. TRIAMTERENE AND HYDROCHLOROTHIAZIDE [Concomitant]
     Active Substance: HYDROCHLOROTHIAZIDE\TRIAMTERENE
  7. LIPITOR [Concomitant]
     Active Substance: ATORVASTATIN CALCIUM
  8. DILTIAZEM. [Concomitant]
     Active Substance: DILTIAZEM
  9. ZITHROMAX [Concomitant]
     Active Substance: AZITHROMYCIN DIHYDRATE
  10. VITAMIN D [Concomitant]
     Active Substance: CHOLECALCIFEROL
  11. ALBUTEROL. [Concomitant]
     Active Substance: ALBUTEROL
  12. DETROL LA [Concomitant]
     Active Substance: TOLTERODINE TARTRATE
  13. BENZONATATE. [Concomitant]
     Active Substance: BENZONATATE
  14. HYDROCODONE BITARTRATE AND ACETAMINOPHEN [Concomitant]
     Active Substance: ACETAMINOPHEN\HYDROCODONE BITARTRATE
  15. PANTOPRAZOLE [Concomitant]
     Active Substance: PANTOPRAZOLE
  16. FOSAMAX [Suspect]
     Active Substance: ALENDRONATE SODIUM
     Indication: OSTEOPOROSIS
     Dosage: 10 MG DAILY
     Route: 048
     Dates: start: 199801, end: 200007
  17. METHYLPREDNISOLONE. [Concomitant]
     Active Substance: METHYLPREDNISOLONE
  18. BONIVA [Suspect]
     Active Substance: IBANDRONATE SODIUM
     Dosage: 150 MG, Q MONTH
     Route: 048
     Dates: start: 2001
  19. GUAIFENESIN/CODEINE [Concomitant]
     Active Substance: CODEINE PHOSPHATE\GUAIFENESIN
  20. AMBIEN [Concomitant]
     Active Substance: ZOLPIDEM TARTRATE
  21. BONIVA [Suspect]
     Active Substance: IBANDRONATE SODIUM
     Indication: OSTEOPOROSIS
     Dosage: 150 MG MONTHLY
     Route: 065
     Dates: start: 200904, end: 201103
  22. TRAMADOL. [Concomitant]
     Active Substance: TRAMADOL
  23. AZMACORT [Concomitant]
     Active Substance: TRIAMCINOLONE ACETONIDE
  24. FERROUS SULFATE. [Concomitant]
     Active Substance: FERROUS SULFATE
  25. ADVAIR HFA [Concomitant]
     Active Substance: FLUTICASONE PROPIONATE\SALMETEROL XINAFOATE
  26. ACTONEL [Suspect]
     Active Substance: RISEDRONATE SODIUM
     Indication: OSTEOPENIA
     Dosage: 35 MG WEEKLY
     Route: 048
     Dates: start: 200402, end: 200903
  27. FOSAMAX [Suspect]
     Active Substance: ALENDRONATE SODIUM
     Dosage: UNK
     Route: 048
     Dates: start: 2001, end: 2011

REACTIONS (12)
  - Bone disorder [Unknown]
  - Lymphoproliferative disorder [Unknown]
  - Comminuted fracture [Unknown]
  - Stress fracture [Unknown]
  - Pain [Unknown]
  - Emotional distress [Unknown]
  - Rib fracture [Unknown]
  - Fall [Unknown]
  - Spinal fracture [Unknown]
  - Femur fracture [Unknown]
  - Low turnover osteopathy [Unknown]
  - Adverse event [Unknown]

NARRATIVE: CASE EVENT DATE: 2001
